FAERS Safety Report 6539551-2 (Version None)
Quarter: 2010Q1

REPORT INFORMATION
  Report Type: 
  Country: None (occurrence: None)
  Receive Date: 20100115
  Receipt Date: 20100108
  Transmission Date: 20100710
  Serious: Yes (Other)
  Sender: FDA-Public Use
  Company Number: B0624644B

PATIENT
  Sex: Female
  Weight: 60 kg

DRUGS (6)
  1. LAPATINIB [Suspect]
     Indication: BREAST CANCER
     Dosage: 1000MG PER DAY
     Route: 048
     Dates: start: 20091208
  2. TRASTUZUMAB [Suspect]
     Indication: BREAST CANCER
     Route: 042
     Dates: start: 20091208
  3. PACLITAXEL [Suspect]
     Indication: BREAST CANCER
     Dosage: 80MGM2 WEEKLY
     Route: 042
     Dates: start: 20091208
  4. FLUOROURACIL [Concomitant]
     Indication: CHEMOTHERAPY
     Route: 042
  5. EPIRUBICIN [Concomitant]
     Indication: CHEMOTHERAPY
     Route: 042
  6. CYCLOPHOSPHAMIDE [Concomitant]
     Indication: CHEMOTHERAPY
     Route: 042

REACTIONS (2)
  - CELL DEATH [None]
  - DIARRHOEA [None]
